FAERS Safety Report 8777991 (Version 1)
Quarter: 2012Q4

REPORT INFORMATION
  Report Type: 
  Country: OM (occurrence: OM)
  Receive Date: 20120912
  Receipt Date: 20120912
  Transmission Date: 20130627
  Serious: Yes (Death)
  Sender: FDA-Public Use
  Company Number: OM-ABBOTT-12P-123-0978579-00

PATIENT
  Sex: Male

DRUGS (1)
  1. BERACTANT (SURVANTA) [Suspect]
     Indication: ACUTE RESPIRATORY DISTRESS SYNDROME

REACTIONS (1)
  - Pulmonary haemorrhage [Fatal]
